FAERS Safety Report 10478441 (Version 2)
Quarter: 2014Q4

REPORT INFORMATION
  Report Type: Spontaneous
  Country: US (occurrence: US)
  Receive Date: 20140926
  Receipt Date: 20141105
  Transmission Date: 20150528
  Serious: No
  Sender: FDA-Public Use
  Company Number: US-BAYER-2014-143294

PATIENT
  Age: 24 Year
  Sex: Female
  Weight: 70.75 kg

DRUGS (1)
  1. SKYLA [Suspect]
     Active Substance: LEVONORGESTREL
     Indication: CONTRACEPTION
     Dosage: 14 MCG/24HR, CONT
     Route: 015
     Dates: start: 20140121, end: 20140930

REACTIONS (5)
  - Headache [None]
  - Nausea [None]
  - Drug ineffective [None]
  - Dizziness [None]
  - Pregnancy with contraceptive device [None]

NARRATIVE: CASE EVENT DATE: 2014
